FAERS Safety Report 7494386-1 (Version None)
Quarter: 2011Q2

REPORT INFORMATION
  Report Type: 
  Country: None (occurrence: None)
  Receive Date: 20110520
  Receipt Date: 20110514
  Transmission Date: 20111010
  Serious: Yes (Other)
  Sender: FDA-Public Use
  Company Number: US-SANOFI-AVENTIS-2011SA030411

PATIENT

DRUGS (1)
  1. ELIGARD [Suspect]
     Route: 065
     Dates: end: 20110101

REACTIONS (1)
  - SYSTEMIC LUPUS ERYTHEMATOSUS [None]
